FAERS Safety Report 13900588 (Version 1)
Quarter: 2017Q3

REPORT INFORMATION
  Report Type: Spontaneous
  Country: US (occurrence: US)
  Receive Date: 20170823
  Receipt Date: 20170823
  Transmission Date: 20171127
  Serious: No
  Sender: FDA-Public Use
  Company Number: US-VISTAPHARM, INC.-VER201707-000220

PATIENT

DRUGS (1)
  1. NYSTATIN ORAL SUSPENSION, USP 100,000 UNITS/ML [Suspect]
     Active Substance: NYSTATIN

REACTIONS (1)
  - Burning sensation [Unknown]
